FAERS Safety Report 16278666 (Version 1)
Quarter: 2019Q2

REPORT INFORMATION
  Report Type: Spontaneous
  Country: US (occurrence: US)
  Receive Date: 20190506
  Receipt Date: 20190506
  Transmission Date: 20190711
  Serious: Yes (Other)
  Sender: FDA-Public Use
  Company Number: US-JNJFOC-20190500940

PATIENT
  Age: 44 Year
  Sex: Female

DRUGS (1)
  1. INVOKANA [Suspect]
     Active Substance: CANAGLIFLOZIN
     Indication: TYPE 2 DIABETES MELLITUS
     Route: 048
     Dates: start: 201312

REACTIONS (7)
  - Foot amputation [Unknown]
  - Extremity necrosis [Unknown]
  - Diabetic foot infection [Recovering/Resolving]
  - Diabetes mellitus inadequate control [Recovering/Resolving]
  - Gangrene [Unknown]
  - Cellulitis [Unknown]
  - Osteomyelitis [Unknown]

NARRATIVE: CASE EVENT DATE: 201607
